FAERS Safety Report 16348148 (Version 1)
Quarter: 2019Q2

REPORT INFORMATION
  Report Type: Spontaneous
  Country: US (occurrence: US)
  Receive Date: 20190523
  Receipt Date: 20190523
  Transmission Date: 20190711
  Serious: No
  Sender: FDA-Public Use
  Company Number: US-IGSA-SR10008026

PATIENT
  Age: 40 Year
  Sex: Male
  Weight: 89 kg

DRUGS (8)
  1. VALTREX [Concomitant]
     Active Substance: VALACYCLOVIR HYDROCHLORIDE
  2. HYDROCORTISONE. [Concomitant]
     Active Substance: HYDROCORTISONE
  3. WELLBUTRIN [Concomitant]
     Active Substance: BUPROPION HYDROCHLORIDE
  4. NYSTATIN                           /00982301/ [Concomitant]
  5. MIDODRINE [Concomitant]
     Active Substance: MIDODRINE
  6. METOPROLOL. [Concomitant]
     Active Substance: METOPROLOL
  7. GAMUNEX-C [Suspect]
     Active Substance: HUMAN IMMUNOGLOBULIN G
     Indication: AUTONOMIC NERVOUS SYSTEM IMBALANCE
     Dosage: 120 G, Q.M.T.
     Route: 042
     Dates: start: 20190311
  8. NOVAREL [Concomitant]
     Active Substance: CHORIOGONADOTROPIN ALFA

REACTIONS (2)
  - Urticaria [Recovered/Resolved]
  - Pruritus [Recovered/Resolved]

NARRATIVE: CASE EVENT DATE: 20190312
